FAERS Safety Report 13577068 (Version 3)
Quarter: 2017Q4

REPORT INFORMATION
  Report Type: Spontaneous
  Country: US (occurrence: US)
  Receive Date: 20170524
  Receipt Date: 20171017
  Transmission Date: 20180320
  Serious: No
  Sender: FDA-Public Use
  Company Number: US-PFIZER INC-2017226765

PATIENT
  Age: 53 Year
  Sex: Female
  Weight: 62 kg

DRUGS (22)
  1. DOCETAXEL. [Suspect]
     Active Substance: DOCETAXEL
     Indication: CHEMOTHERAPY
     Dosage: 75 MG/M2, EVERY 3 WEEKS (SIX CYCLES)
     Dates: start: 20091207, end: 20100423
  2. TAXOTERE [Suspect]
     Active Substance: DOCETAXEL
     Indication: BREAST CANCER FEMALE
  3. NEXIUM [Concomitant]
     Active Substance: ESOMEPRAZOLE MAGNESIUM
     Dosage: UNK
  4. EFFEXOR [Concomitant]
     Active Substance: VENLAFAXINE HYDROCHLORIDE
     Dosage: UNK
  5. CARBOPLATIN. [Concomitant]
     Active Substance: CARBOPLATIN
     Indication: CHEMOTHERAPY
     Dosage: UNK
  6. TAXOTERE [Suspect]
     Active Substance: DOCETAXEL
     Indication: CHEMOTHERAPY
     Dosage: 75 MG/M2, EVERY 3 WEEKS (SIX CYCLES)
     Dates: start: 20091207, end: 20100423
  7. MAXALT [Concomitant]
     Active Substance: RIZATRIPTAN BENZOATE
     Dosage: UNK, REGULARLY
     Dates: start: 19980602
  8. PARAPLATIN [Concomitant]
     Active Substance: CARBOPLATIN
     Indication: CHEMOTHERAPY
     Dosage: UNK
  9. TYLENOL [Concomitant]
     Active Substance: ACETAMINOPHEN
     Dosage: UNK
  10. ZOLPIDEM [Concomitant]
     Active Substance: ZOLPIDEM\ZOLPIDEM TARTRATE
     Dosage: UNK
  11. MORTIN [Concomitant]
     Active Substance: SULFAMETHOXAZOLE\TRIMETHOPRIM
     Dosage: UNK
  12. HERCEPTIN [Concomitant]
     Active Substance: TRASTUZUMAB
     Indication: CHEMOTHERAPY
     Dosage: UNK
  13. LIDOCAINE. [Concomitant]
     Active Substance: LIDOCAINE
     Dosage: UNK
  14. PRAVACHOL [Concomitant]
     Active Substance: PRAVASTATIN SODIUM
     Dosage: UNK, REGULARLY
     Dates: start: 19980602
  15. COMTREX [Concomitant]
     Indication: NASOPHARYNGITIS
     Dosage: UNK, REGULARLY
     Dates: start: 200406
  16. DOCETAXEL. [Suspect]
     Active Substance: DOCETAXEL
     Indication: BREAST CANCER FEMALE
  17. SENOKOT [Concomitant]
     Active Substance: SENNOSIDES
     Dosage: UNK
  18. PRILOCAINE [Concomitant]
     Active Substance: PRILOCAINE
     Dosage: UNK
  19. CIPRO [Concomitant]
     Active Substance: CIPROFLOXACIN HYDROCHLORIDE
     Dosage: UNK
  20. COMTREX [Concomitant]
     Indication: COUGH
  21. ZOCOR [Concomitant]
     Active Substance: SIMVASTATIN
     Dosage: UNK
  22. LIPITOR [Concomitant]
     Active Substance: ATORVASTATIN CALCIUM
     Dosage: UNK

REACTIONS (5)
  - Madarosis [Recovered/Resolved]
  - Alopecia [Recovered/Resolved]
  - Hair texture abnormal [Recovered/Resolved]
  - Hair colour changes [Recovered/Resolved]
  - Hair disorder [Recovered/Resolved]

NARRATIVE: CASE EVENT DATE: 20091222
